FAERS Safety Report 8578631-7 (Version None)
Quarter: 2012Q3

REPORT INFORMATION
  Report Type: 
  Country: None (occurrence: None)
  Receive Date: 20120808
  Receipt Date: 20120731
  Transmission Date: 20120928
  Serious: Yes (Other)
  Sender: FDA-Public Use
  Company Number: SE-ASTELLAS-2012US006586

PATIENT
  Age: 61 Year
  Sex: Female

DRUGS (5)
  1. CYANOCOBALAMIN [Concomitant]
     Indication: PRODUCT USED FOR UNKNOWN INDICATION
     Dosage: UNK
     Route: 065
  2. ALIMTA [Concomitant]
     Indication: PRODUCT USED FOR UNKNOWN INDICATION
     Dosage: UNK
     Route: 065
  3. TARCEVA [Suspect]
     Dosage: 100 MG, UNKNOWN/D
     Route: 048
  4. TARCEVA [Suspect]
     Indication: PRODUCT USED FOR UNKNOWN INDICATION
     Dosage: 150 MG, UNKNOWN/D
     Route: 048
     Dates: start: 20100601, end: 20111201
  5. GEMZAR [Concomitant]
     Indication: PRODUCT USED FOR UNKNOWN INDICATION
     Dosage: UNK
     Route: 065

REACTIONS (5)
  - ASTHENIA [None]
  - PERNICIOUS ANAEMIA [None]
  - DIARRHOEA [None]
  - FOLATE DEFICIENCY [None]
  - FATIGUE [None]
